FAERS Safety Report 25944095 (Version 2)
Quarter: 2025Q4

REPORT INFORMATION
  Report Type: Spontaneous
  Country: EU (occurrence: EU)
  Receive Date: 20251021
  Receipt Date: 20251105
  Transmission Date: 20260118
  Serious: Yes (Other)
  Sender: ALEXION PHARMACEUTICALS
  Company Number: EU-GRUNENTHAL-2025-121626

PATIENT
  Age: 69 Year
  Sex: Female

DRUGS (2)
  1. CRESTOR [Suspect]
     Active Substance: ROSUVASTATIN CALCIUM
     Indication: Product used for unknown indication
     Dosage: 5 MILLIGRAM, 1/DAY
  2. CRESTOR [Suspect]
     Active Substance: ROSUVASTATIN CALCIUM
     Dosage: 5 MILLIGRAM

REACTIONS (7)
  - Sudden hearing loss [Recovered/Resolved]
  - Gastrointestinal disorder [Recovered/Resolved]
  - Product coating issue [Unknown]
  - Product taste abnormal [Unknown]
  - Product odour abnormal [Unknown]
  - Poor quality product administered [Unknown]
  - Pain in extremity [Recovered/Resolved]

NARRATIVE: CASE EVENT DATE: 20000101
